FAERS Safety Report 21804261 (Version 1)
Quarter: 2023Q1

REPORT INFORMATION
  Report Type: Report from Study
  Country: US (occurrence: US)
  Receive Date: 20230102
  Receipt Date: 20230102
  Transmission Date: 20230418
  Serious: No
  Sender: FDA-Public Use
  Company Number: US-ABBVIE-4223248

PATIENT
  Sex: Female

DRUGS (1)
  1. HUMIRA [Suspect]
     Active Substance: ADALIMUMAB
     Indication: Rheumatoid arthritis
     Dosage: CF
     Route: 058

REACTIONS (4)
  - Acne [Recovering/Resolving]
  - Heart rate increased [Recovering/Resolving]
  - COVID-19 [Recovered/Resolved]
  - Localised infection [Recovering/Resolving]

NARRATIVE: CASE EVENT DATE: 20190101
